FAERS Safety Report 10065796 (Version 1)
Quarter: 2014Q2

REPORT INFORMATION
  Report Type: Spontaneous
  Country: US (occurrence: US)
  Receive Date: 20140408
  Receipt Date: 20140408
  Transmission Date: 20141212
  Serious: No
  Sender: FDA-Public Use
  Company Number: US-ASTELLAS-2014US002298

PATIENT
  Age: 58 Year
  Sex: Female
  Weight: 86 kg

DRUGS (2)
  1. MYRBETRIQ [Suspect]
     Indication: PRODUCT USED FOR UNKNOWN INDICATION
     Dosage: 50 MG, ONCE DAILY
     Route: 048
     Dates: start: 20140226
  2. ZOLOFT [Concomitant]
     Indication: DEPRESSED MOOD
     Dosage: UNK
     Route: 065

REACTIONS (5)
  - Intentional product misuse [Unknown]
  - Lethargy [Unknown]
  - Depressed mood [Unknown]
  - Nausea [Unknown]
  - Fatigue [Unknown]
